FAERS Safety Report 10083201 (Version 1)
Quarter: 2014Q2

REPORT INFORMATION
  Report Type: Report from Study
  Country: US (occurrence: US)
  Receive Date: 20140417
  Receipt Date: 20140417
  Transmission Date: 20141212
  Serious: Yes (Other)
  Sender: FDA-Public Use
  Company Number: US-ROCHE-1380282

PATIENT
  Sex: Male
  Weight: 31.78 kg

DRUGS (2)
  1. NUTROPIN [Suspect]
     Indication: GROWTH HORMONE DEFICIENCY
     Route: 058
  2. NUTROPIN [Suspect]
     Route: 058

REACTIONS (4)
  - Enuresis [Unknown]
  - Scoliosis [Unknown]
  - Hypothyroidism [Unknown]
  - Treatment noncompliance [Unknown]
